FAERS Safety Report 15019755 (Version 1)
Quarter: 2018Q2

REPORT INFORMATION
  Report Type: Spontaneous
  Country: US (occurrence: US)
  Receive Date: 20180618
  Receipt Date: 20180618
  Transmission Date: 20180711
  Serious: No
  Sender: FDA-Public Use
  Company Number: US-SHIRE-US201821848

PATIENT
  Age: 85 Year
  Sex: Female

DRUGS (1)
  1. XIIDRA [Suspect]
     Active Substance: LIFITEGRAST
     Indication: DRY EYE
     Dosage: 1 DROP EACH EYE
     Route: 047
     Dates: start: 201805

REACTIONS (3)
  - Instillation site reaction [Unknown]
  - Instillation site pain [Unknown]
  - Vision blurred [Unknown]
